FAERS Safety Report 6240895-2 (Version None)
Quarter: 2009Q2

REPORT INFORMATION
  Report Type: 
  Country: None (occurrence: None)
  Receive Date: 20090619
  Receipt Date: 20090610
  Transmission Date: 20091009
  Serious: Yes (Death)
  Sender: FDA-Public Use
  Company Number: KADN20090059

PATIENT
  Age: 41 Year
  Sex: Male

DRUGS (2)
  1. MORPHINE [Suspect]
     Indication: DRUG USE FOR UNKNOWN INDICATION
     Dosage: INGESTION
     Dates: end: 20070101
  2. HYDROCODONE BITARTRATE [Suspect]
     Indication: DRUG USE FOR UNKNOWN INDICATION
     Dosage: INGESTION
     Dates: end: 20070101

REACTIONS (6)
  - ASTHMA [None]
  - BRONCHIAL SECRETION RETENTION [None]
  - BRONCHOSPASM [None]
  - DRUG TOXICITY [None]
  - LUNG HYPERINFLATION [None]
  - UNRESPONSIVE TO STIMULI [None]
